FAERS Safety Report 17292731 (Version 1)
Quarter: 2020Q1

REPORT INFORMATION
  Report Type: Spontaneous
  Country: US (occurrence: US)
  Receive Date: 20200119
  Receipt Date: 20200119
  Transmission Date: 20200409
  Serious: Yes (Other)
  Sender: FDA-Public Use
  Company Number: None

PATIENT
  Age: 23 Year
  Sex: Female
  Weight: 62.55 kg

DRUGS (10)
  1. HYDROCORTISONE 2.5% [Suspect]
     Active Substance: HYDROCORTISONE
     Indication: ECZEMA
     Dates: start: 19971031, end: 20191205
  2. MAGNESIUM / CALCIUM / ZINC [Concomitant]
  3. TRIAMCINOLONE [Suspect]
     Active Substance: TRIAMCINOLONE
     Indication: ECZEMA
  4. TUMERIC/CURCUMIN [Concomitant]
  5. HYDROXYZINE [Concomitant]
     Active Substance: HYDROXYZINE HYDROCHLORIDE
  6. VITAMIN A [Concomitant]
     Active Substance: VITAMIN A
  7. VITAMIN C [Concomitant]
     Active Substance: ASCORBIC ACID
  8. VALTREX [Concomitant]
     Active Substance: VALACYCLOVIR HYDROCHLORIDE
  9. ALEVE [Concomitant]
     Active Substance: NAPROXEN SODIUM
  10. VITAMIN E [Concomitant]
     Active Substance: .ALPHA.-TOCOPHEROL

REACTIONS (15)
  - Neuralgia [None]
  - Night sweats [None]
  - Oligomenorrhoea [None]
  - Pain of skin [None]
  - Dry skin [None]
  - Tremor [None]
  - Feeling cold [None]
  - Skin weeping [None]
  - Steroid withdrawal syndrome [None]
  - Insomnia [None]
  - Skin fissures [None]
  - Feeling abnormal [None]
  - Weight decreased [None]
  - Anxiety [None]
  - Drug ineffective [None]

NARRATIVE: CASE EVENT DATE: 20191205
